FAERS Safety Report 22131798 (Version 3)
Quarter: 2024Q1

REPORT INFORMATION
  Report Type: Spontaneous
  Country: IT (occurrence: IT)
  Receive Date: 20230323
  Receipt Date: 20240116
  Transmission Date: 20240410
  Serious: Yes (Life-Threatening, Hospitalization, Other)
  Sender: FDA-Public Use
  Company Number: IT-CELGENE-ITA-20220103946

PATIENT
  Age: 51 Year
  Sex: Male

DRUGS (37)
  1. LENALIDOMIDE [Suspect]
     Active Substance: LENALIDOMIDE
     Indication: Plasma cell myeloma
     Dosage: FREQUENCY TEXT: NOT PROVIDED
     Route: 048
     Dates: start: 20211027, end: 20220111
  2. DEXAMETHASONE [Suspect]
     Active Substance: DEXAMETHASONE
     Indication: Plasma cell myeloma
     Dosage: FREQUENCY TEXT: NOT PROVIDED
     Route: 048
     Dates: start: 20211026, end: 20220111
  3. ISATUXIMAB [Suspect]
     Active Substance: ISATUXIMAB
     Indication: Plasma cell myeloma
     Dosage: FREQUENCY TEXT: NOT PROVIDED
     Dates: start: 20211026
  4. ISATUXIMAB [Suspect]
     Active Substance: ISATUXIMAB
     Dosage: FREQUENCY TEXT: NOT PROVIDED
     Dates: start: 20211123
  5. CARFILZOMIB [Suspect]
     Active Substance: CARFILZOMIB
     Indication: Plasma cell myeloma
     Dosage: FREQUENCY TEXT: NOT PROVIDED
     Route: 042
     Dates: start: 20211102, end: 20220104
  6. MONTELUKAST [Concomitant]
     Active Substance: MONTELUKAST SODIUM
     Indication: Prophylaxis
     Dosage: FREQUENCY TEXT: NOT PROVIDED
     Dates: start: 20211025
  7. HYDROCORTISONE SODIUM SUCCINATE [Concomitant]
     Active Substance: HYDROCORTISONE SODIUM SUCCINATE
     Indication: Respiratory distress
     Dosage: FREQUENCY TEXT: NOT PROVIDED
     Dates: start: 20211026, end: 20211026
  8. TRIMETON [Concomitant]
     Active Substance: CHLORPHENIRAMINE MALEATE
     Indication: Respiratory distress
     Dosage: FREQUENCY TEXT: NOT PROVIDED
     Dates: start: 20211026, end: 20211026
  9. TRIMETON [Concomitant]
     Active Substance: CHLORPHENIRAMINE MALEATE
     Dosage: FREQUENCY TEXT: NOT PROVIDED
     Dates: start: 20211123, end: 20211123
  10. FUROSEMIDE [Concomitant]
     Active Substance: FUROSEMIDE
     Indication: Respiratory distress
     Dosage: FREQUENCY TEXT: NOT PROVIDED
     Route: 042
     Dates: start: 20211026, end: 20211026
  11. FUROSEMIDE [Concomitant]
     Active Substance: FUROSEMIDE
     Indication: Prophylaxis
     Dosage: FREQUENCY TEXT: NOT PROVIDED
     Route: 042
     Dates: start: 20211116
  12. FUROSEMIDE [Concomitant]
     Active Substance: FUROSEMIDE
  13. ACETAMINOPHEN [Concomitant]
     Active Substance: ACETAMINOPHEN
     Indication: Respiratory distress
     Dosage: FREQUENCY TEXT: NOT PROVIDED
     Dates: start: 20211123, end: 20211123
  14. FAMOTIDINE [Concomitant]
     Active Substance: FAMOTIDINE
     Indication: Respiratory distress
     Dosage: FREQUENCY TEXT: NOT PROVIDED
     Dates: start: 20211123, end: 20211123
  15. covid vaccine [Concomitant]
     Indication: Prophylaxis
     Dosage: FREQUENCY TEXT: NOT PROVIDED?PFIZER FIRST DOSE
     Dates: start: 20210414, end: 20210414
  16. covid vaccine [Concomitant]
     Dosage: FREQUENCY TEXT: NOT PROVIDED?PFIZER SECOND DOSE
     Dates: start: 20210505, end: 20210505
  17. covid vaccine [Concomitant]
     Dosage: FREQUENCY TEXT: NOT PROVIDED?PFIZER THIRD DOSE
     Dates: start: 20210922, end: 20210922
  18. LEVOFLOXACIN [Concomitant]
     Active Substance: LEVOFLOXACIN
     Indication: Pyrexia
     Dates: start: 20220627
  19. MORPHINE [Concomitant]
     Active Substance: MORPHINE
     Indication: Mucosal inflammation
     Dates: start: 20220615
  20. G CSF RECOMBINANTE HUMANO BIOETICOS [Concomitant]
     Indication: Cytopenia
     Dates: start: 20220605
  21. PAXLOVID [Concomitant]
     Active Substance: NIRMATRELVIR\RITONAVIR
     Indication: COVID-19
     Dates: start: 20220930, end: 20221004
  22. COMIRNATY (TOZINAMERAN) [Concomitant]
     Active Substance: TOZINAMERAN
     Indication: Prophylaxis
     Dosage: 2ND VACCINATION
     Dates: start: 20210505, end: 20210505
  23. COMIRNATY (TOZINAMERAN) [Concomitant]
     Active Substance: TOZINAMERAN
     Dosage: 3RD VACCINATION
     Dates: start: 20210922, end: 20210922
  24. COMIRNATY (TOZINAMERAN) [Concomitant]
     Active Substance: TOZINAMERAN
     Dosage: 4TH VACCINATION
     Dates: start: 20220825, end: 20220825
  25. COMIRNATY (TOZINAMERAN) [Concomitant]
     Active Substance: TOZINAMERAN
     Dosage: 5TH VACCINATION
     Dates: start: 20230324, end: 20230324
  26. COMIRNATY (TOZINAMERAN) [Concomitant]
     Active Substance: TOZINAMERAN
     Dosage: 1ST VACCINATION
     Dates: start: 20210414, end: 20210414
  27. CHLORPHENIRAMINE [Concomitant]
     Active Substance: CHLORPHENIRAMINE
     Indication: Premedication
     Dates: start: 20211026, end: 20211026
  28. CHLORPHENIRAMINE [Concomitant]
     Active Substance: CHLORPHENIRAMINE
     Dates: start: 20211123, end: 20211123
  29. CHLORPHENIRAMINE [Concomitant]
     Active Substance: CHLORPHENIRAMINE
     Dates: start: 20211130
  30. ACETAMINOPHEN [Concomitant]
     Active Substance: ACETAMINOPHEN
     Indication: Premedication
     Dates: start: 20211123, end: 20211123
  31. ACETAMINOPHEN [Concomitant]
     Active Substance: ACETAMINOPHEN
     Dates: start: 20211026, end: 20211026
  32. ENOXAPARIN [Concomitant]
     Active Substance: ENOXAPARIN
     Indication: Thrombosis prophylaxis
     Dosage: 4000 UNSPECIFIED DOSE
     Route: 058
     Dates: start: 20211026
  33. ACYCLOVIR [Concomitant]
     Active Substance: ACYCLOVIR
     Indication: Prophylaxis
     Dates: start: 20211026
  34. BACTRIM [Concomitant]
     Active Substance: SULFAMETHOXAZOLE\TRIMETHOPRIM
     Indication: Prophylaxis
     Dates: start: 20211026
  35. BISOPROLOL [Concomitant]
     Active Substance: BISOPROLOL\BISOPROLOL FUMARATE
     Indication: Prophylaxis
     Dates: start: 20211026
  36. METFORMIN HYDROCHLORIDE [Concomitant]
     Active Substance: METFORMIN HYDROCHLORIDE
     Indication: Diabetes mellitus
     Dates: start: 20211026
  37. INSULIN NOS [Concomitant]
     Active Substance: INSULIN NOS
     Indication: Diabetes mellitus
     Dates: start: 20211026

REACTIONS (1)
  - COVID-19 pneumonia [Recovered/Resolved]

NARRATIVE: CASE EVENT DATE: 20220113
